FAERS Safety Report 10174430 (Version 1)
Quarter: 2014Q2

REPORT INFORMATION
  Report Type: Spontaneous
  Country: US (occurrence: None)
  Receive Date: 20140416
  Receipt Date: 20140416
  Transmission Date: 20141212
  Serious: Yes (Hospitalization, Other)
  Sender: FDA-Public Use
  Company Number: 163-POMAL-13120831

PATIENT
  Age: 73 Year
  Sex: Female
  Weight: 74 kg

DRUGS (8)
  1. POMALYST (POMALIDOMIDE) (4 MILLIGRAM, CAPSULES) [Suspect]
     Indication: PLASMA CELL MYELOMA
     Route: 048
     Dates: start: 20131022, end: 20131209
  2. PANTOPRAZOLE SOD (PANTOPRAZOLE SODIUM) [Concomitant]
  3. DEXAMETHASONE (DEXAMETHASONE) [Concomitant]
  4. VITAMIN D3 (COLECALCIFEROL) [Concomitant]
  5. B-6 FOLIC ACID (TETRAFOLEVIT) [Concomitant]
  6. VITAMIN B COMPLEX (B-KOMPLEX ^LECIVA^) [Concomitant]
  7. EFFERVESCENT POTASSIUM (POTASSIUM CHLORIDE) [Concomitant]
  8. GABAPENTIN (GABAPENTIN) [Concomitant]

REACTIONS (6)
  - Lobar pneumonia [None]
  - Neutropenia [None]
  - Pyrexia [None]
  - Dyspnoea [None]
  - Haemoglobin decreased [None]
  - Platelet count decreased [None]
